FAERS Safety Report 4838881-X (Version None)
Quarter: 2005Q4

REPORT INFORMATION
  Report Type: 
  Country: None (occurrence: None)
  Receive Date: 20051129
  Receipt Date: 20020227
  Transmission Date: 20060501
  Serious: No
  Sender: FDA-Public Use
  Company Number: US-GLAXOSMITHKLINE-A0361864A

PATIENT
  Age: 59 Year
  Sex: Female

DRUGS (9)
  1. LOTRONEX [Suspect]
     Indication: IRRITABLE BOWEL SYNDROME
     Dosage: .5MG PER DAY
     Route: 048
     Dates: start: 20001001
  2. METAMUCIL [Concomitant]
     Dosage: 1TBS AS DIRECTED
  3. PREMARIN [Concomitant]
  4. ZOLOFT [Concomitant]
  5. LORAZEPAM [Concomitant]
  6. NORVASC [Concomitant]
  7. NEURONTIN [Concomitant]
  8. SKELAXIN [Concomitant]
  9. PRILOSEC [Concomitant]

REACTIONS (4)
  - ABDOMINAL PAIN [None]
  - CONSTIPATION [None]
  - GASTROINTESTINAL PAIN [None]
  - RECTAL HAEMORRHAGE [None]
